FAERS Safety Report 21770584 (Version 6)
Quarter: 2023Q2

REPORT INFORMATION
  Report Type: Spontaneous
  Country: US (occurrence: US)
  Receive Date: 20221223
  Receipt Date: 20230406
  Transmission Date: 20230721
  Serious: No
  Sender: FDA-Public Use
  Company Number: US-GSK-US2022AMR188609

PATIENT
  Age: 54 Year
  Sex: Male
  Weight: 99.8 kg

DRUGS (1)
  1. BENLYSTA [Suspect]
     Active Substance: BELIMUMAB
     Indication: Product used for unknown indication
     Dosage: UNK
     Route: 030
     Dates: start: 20190219

REACTIONS (12)
  - Injection site pain [Unknown]
  - Injection site haemorrhage [Unknown]
  - Rash [Unknown]
  - Nausea [Unknown]
  - Vomiting [Unknown]
  - Arthralgia [Unknown]
  - Underdose [Unknown]
  - Product administered at inappropriate site [Unknown]
  - Product dose omission issue [Recovering/Resolving]
  - Incorrect dose administered [Unknown]
  - Product complaint [Unknown]
  - Wrong technique in device usage process [Unknown]

NARRATIVE: CASE EVENT DATE: 20221228
